FAERS Safety Report 4534380-3 (Version None)
Quarter: 2004Q4

REPORT INFORMATION
  Report Type: 
  Country: None (occurrence: None)
  Receive Date: 20041221
  Receipt Date: 20041221
  Transmission Date: 20050328
  Serious: Yes (Other)
  Sender: FDA-Public Use
  Company Number: None

PATIENT
  Age: 26 Year
  Sex: Female
  Weight: 113 kg

DRUGS (2)
  1. FENTANYL [Suspect]
     Dosage: EPIDURAL
     Route: 008
     Dates: start: 20041122
  2. BUPIVICAINE 0.1% [Suspect]
     Dosage: EPIDURAL
     Route: 008
     Dates: start: 20041122

REACTIONS (3)
  - ANAESTHETIC COMPLICATION [None]
  - DRUG INEFFECTIVE [None]
  - PHARMACEUTICAL PRODUCT COMPLAINT [None]
